FAERS Safety Report 5508756-1 (Version None)
Quarter: 2007Q4

REPORT INFORMATION
  Report Type: 
  Country: None (occurrence: None)
  Receive Date: 20071107
  Receipt Date: 20071102
  Transmission Date: 20080405
  Serious: Yes (Life-Threatening, Disabling, Other)
  Sender: FDA-Public Use
  Company Number: A0691235A

PATIENT
  Age: 54 Year
  Sex: Male

DRUGS (2)
  1. AVODART [Suspect]
     Indication: DRUG USE FOR UNKNOWN INDICATION
     Route: 048
  2. OTHER MEDICATIONS [Concomitant]

REACTIONS (3)
  - ANAPHYLACTIC REACTION [None]
  - LIP SWELLING [None]
  - PHARYNGEAL OEDEMA [None]
